FAERS Safety Report 8348084-2 (Version None)
Quarter: 2012Q2

REPORT INFORMATION
  Report Type: 
  Country: None (occurrence: None)
  Receive Date: 20120509
  Receipt Date: 20120502
  Transmission Date: 20120825
  Serious: Yes (Hospitalization, Other)
  Sender: FDA-Public Use
  Company Number: US-JNJFOC-20120413201

PATIENT
  Sex: Male
  Weight: 81.65 kg

DRUGS (4)
  1. XARELTO [Suspect]
     Indication: HIP ARTHROPLASTY
     Route: 048
     Dates: start: 20120403
  2. XARELTO [Suspect]
     Indication: THROMBOSIS PROPHYLAXIS
     Route: 048
     Dates: start: 20120403
  3. ALLEGRA-D 12 HOUR [Concomitant]
     Dosage: 180 MG /60 MG
  4. TORADOL [Concomitant]
     Indication: ANTIINFLAMMATORY THERAPY
     Dates: start: 20120402, end: 20120403

REACTIONS (1)
  - GASTROINTESTINAL HAEMORRHAGE [None]
